FAERS Safety Report 11512961 (Version 2)
Quarter: 2015Q3

REPORT INFORMATION
  Report Type: Spontaneous
  Country: US (occurrence: US)
  Receive Date: 20150903
  Receipt Date: 20150903
  Transmission Date: 20151125
  Serious: No
  Sender: FDA-Public Use
  Company Number: US-ELI_LILLY_AND_COMPANY-US201003003919

PATIENT
  Sex: Female

DRUGS (3)
  1. HUMALOG [Suspect]
     Active Substance: INSULIN LISPRO
     Indication: DIABETES MELLITUS
     Dosage: UNK, AS NEEDED
  2. METFORMIN [Concomitant]
     Active Substance: METFORMIN HYDROCHLORIDE
  3. HUMALOG [Suspect]
     Active Substance: INSULIN LISPRO
     Dosage: UNK, AS NEEDED

REACTIONS (7)
  - Blood glucose increased [Not Recovered/Not Resolved]
  - Blood glucose increased [Recovered/Resolved]
  - Dizziness [Recovered/Resolved]
  - Glycosylated haemoglobin increased [Not Recovered/Not Resolved]
  - Drug dose omission [Recovered/Resolved]
  - Drug ineffective [Recovered/Resolved]
  - Fall [Recovered/Resolved]

NARRATIVE: CASE EVENT DATE: 20100828
